FAERS Safety Report 10246681 (Version 1)
Quarter: 2014Q2

REPORT INFORMATION
  Report Type: Spontaneous
  Country: US (occurrence: None)
  Receive Date: 20140617
  Receipt Date: 20140617
  Transmission Date: 20141212
  Serious: Yes (Disabling)
  Sender: FDA-Public Use
  Company Number: None

PATIENT
  Age: 58 Year
  Sex: Female
  Weight: 71.67 kg

DRUGS (1)
  1. SOLU-MEDROL 1 GRAM PFIZER [Suspect]
     Indication: OPTIC NEURITIS
     Dosage: 1 GRAM ONCE DAILY INTO A VEIN
     Dates: start: 20140530, end: 20140601

REACTIONS (10)
  - Rash erythematous [None]
  - Blister [None]
  - Skin exfoliation [None]
  - Pruritus [None]
  - Headache [None]
  - Nausea [None]
  - Swelling [None]
  - Fatigue [None]
  - Feeling hot [None]
  - Impaired work ability [None]
